FAERS Safety Report 5727504-3 (Version None)
Quarter: 2008Q2

REPORT INFORMATION
  Report Type: 
  Country: None (occurrence: None)
  Receive Date: 20080505
  Receipt Date: 20080421
  Transmission Date: 20081010
  Serious: Yes (Death, Other)
  Sender: FDA-Public Use
  Company Number: JP-ROCHE-560966

PATIENT

DRUGS (4)
  1. TICLOPIDINE HCL [Suspect]
     Indication: THROMBOSIS PROPHYLAXIS
     Route: 065
  2. ASPIRIN [Suspect]
     Indication: THROMBOSIS PROPHYLAXIS
     Route: 065
  3. CLOPIDOGREL [Suspect]
     Indication: THROMBOSIS PROPHYLAXIS
     Route: 065
  4. CILOSTAZOL [Suspect]
     Indication: THROMBOSIS PROPHYLAXIS
     Route: 065

REACTIONS (9)
  - ACUTE MYOCARDIAL INFARCTION [None]
  - DEATH [None]
  - DENTAL TREATMENT [None]
  - ENDOSCOPY [None]
  - HAEMORRHAGE [None]
  - PULMONARY HAEMORRHAGE [None]
  - SURGERY [None]
  - THROMBOSIS IN DEVICE [None]
  - TREATMENT NONCOMPLIANCE [None]
